FAERS Safety Report 6619207-8 (Version None)
Quarter: 2010Q1

REPORT INFORMATION
  Report Type: 
  Country: None (occurrence: None)
  Receive Date: 20100302
  Receipt Date: 20100219
  Transmission Date: 20100710
  Serious: Yes (Death)
  Sender: FDA-Public Use
  Company Number: 100223-0000230

PATIENT
  Sex: Female

DRUGS (7)
  1. SABRIL [Suspect]
     Indication: INFANTILE SPASMS
     Dosage: 250 MG; QAM;PO
     Route: 048
     Dates: start: 20091201
  2. PHENOBARBITAL TAB [Suspect]
  3. TOPIRAMATE [Concomitant]
  4. PREVACID [Concomitant]
  5. NORVASC [Concomitant]
  6. CARNITOR [Concomitant]
  7. KETOCAL [Concomitant]

REACTIONS (1)
  - BIOPSY MUSCLE [None]
